FAERS Safety Report 7642958-3 (Version None)
Quarter: 2011Q3

REPORT INFORMATION
  Report Type: 
  Country: None (occurrence: None)
  Receive Date: 20110728
  Receipt Date: 20080721
  Transmission Date: 20111222
  Serious: Yes (Other)
  Sender: FDA-Public Use
  Company Number: US-BAYER-200816357NA

PATIENT
  Sex: Male
  Weight: 76 kg

DRUGS (34)
  1. OPTIMARK [Suspect]
     Indication: NUCLEAR MAGNETIC RESONANCE IMAGING
     Route: 042
  2. LASIX [Concomitant]
  3. LISINOPRIL [Concomitant]
  4. GLYBURIDE [Concomitant]
  5. PROHANCE [Suspect]
     Indication: NUCLEAR MAGNETIC RESONANCE IMAGING
     Route: 042
  6. ARANESP [Concomitant]
  7. ACETYLCYSTEINE [Concomitant]
  8. MAGNEVIST [Suspect]
     Indication: NUCLEAR MAGNETIC RESONANCE IMAGING
     Dosage: 5 ML, ONCE
     Dates: start: 20060109
  9. ATIVAN [Concomitant]
  10. EPOGEN [Concomitant]
  11. FERROUS SULFATE TAB [Concomitant]
  12. DILAUDID [Concomitant]
  13. CODEINE SULFATE [Concomitant]
  14. CATAPRES [Concomitant]
  15. PREDNISONE [Concomitant]
  16. MAGNEVIST [Suspect]
     Dosage: 20 ML, ONCE
     Dates: start: 20060727, end: 20060727
  17. OMNISCAN [Suspect]
     Indication: NUCLEAR MAGNETIC RESONANCE IMAGING
     Route: 042
  18. ZOCOR [Concomitant]
  19. ACETYLSALICYLIC ACID SRT [Concomitant]
  20. PHOSLO [Concomitant]
  21. MULTIHANCE [Suspect]
     Indication: NUCLEAR MAGNETIC RESONANCE IMAGING
     Route: 042
  22. OXYCONTIN [Concomitant]
  23. NEURONTIN [Concomitant]
  24. LOVENOX [Concomitant]
  25. LOPRESSOR [Concomitant]
  26. MAGNEVIST [Suspect]
     Dosage: 60 ML, ONCE
     Route: 042
     Dates: start: 20061020, end: 20061020
  27. ZYLOPRIM [Concomitant]
  28. HYTRIN [Concomitant]
  29. VICODIN [Concomitant]
  30. RESTASIS [Concomitant]
  31. AMLODIPINE BESYLATE [Concomitant]
  32. MAGNEVIST [Suspect]
     Indication: ANGIOGRAM
     Dosage: 60 ML, ONCE
     Route: 042
     Dates: start: 20060103
  33. MAGNEVIST [Suspect]
     Dosage: 60 ML, ONCE
     Route: 042
     Dates: start: 20070726, end: 20070726
  34. RENVELA [Concomitant]

REACTIONS (15)
  - INJURY [None]
  - PAIN [None]
  - ANXIETY [None]
  - EMOTIONAL DISTRESS [None]
  - SCAR [None]
  - JOINT CONTRACTURE [None]
  - MUSCLE CONTRACTURE [None]
  - NEPHROGENIC SYSTEMIC FIBROSIS [None]
  - RENAL IMPAIRMENT [None]
  - JOINT STIFFNESS [None]
  - QUALITY OF LIFE DECREASED [None]
  - SKIN HYPERTROPHY [None]
  - LEG AMPUTATION [None]
  - DRY EYE [None]
  - DEPRESSION [None]
